FAERS Safety Report 10522015 (Version 2)
Quarter: 2014Q4

REPORT INFORMATION
  Report Type: Report from Study
  Country: CA (occurrence: CA)
  Receive Date: 20141016
  Receipt Date: 20141023
  Transmission Date: 20150528
  Serious: No
  Sender: FDA-Public Use
  Company Number: CA-009507513-1410CAN005710

PATIENT
  Age: 56 Year
  Sex: Male

DRUGS (3)
  1. PEMBROLIZUMAB. [Suspect]
     Active Substance: PEMBROLIZUMAB
     Indication: METASTATIC MALIGNANT MELANOMA
     Dosage: 150 MG TOTAL DAILY DOSE
     Route: 042
     Dates: start: 20140911
  2. LYRICA [Concomitant]
     Active Substance: PREGABALIN
  3. DILAUDID [Concomitant]
     Active Substance: HYDROMORPHONE HYDROCHLORIDE

REACTIONS (6)
  - Flank pain [Recovered/Resolved]
  - Nausea [Not Recovered/Not Resolved]
  - Intestinal mass [Not Recovered/Not Resolved]
  - Arthralgia [Recovered/Resolved]
  - Surgery [Unknown]
  - Fatigue [Not Recovered/Not Resolved]

NARRATIVE: CASE EVENT DATE: 201409
